FAERS Safety Report 19132830 (Version 1)
Quarter: 2021Q2

REPORT INFORMATION
  Report Type: Spontaneous
  Country: CA (occurrence: CA)
  Receive Date: 20210413
  Receipt Date: 20210413
  Transmission Date: 20210717
  Serious: Yes (Other)
  Sender: FDA-Public Use
  Company Number: CA-PFIZER INC-2021399949

PATIENT
  Age: 73 Year
  Sex: Male

DRUGS (23)
  1. FENTANYL. [Suspect]
     Active Substance: FENTANYL
     Route: 040
  2. ADVAIR HFA [Concomitant]
     Active Substance: FLUTICASONE PROPIONATE\SALMETEROL XINAFOATE
  3. ATROVENT [Concomitant]
     Active Substance: IPRATROPIUM BROMIDE
     Route: 065
  4. HYDROMORPHONE [Concomitant]
     Active Substance: HYDROMORPHONE
  5. RAMIPRIL. [Concomitant]
     Active Substance: RAMIPRIL
  6. MULTIVITAMINES AND MINERALS [Concomitant]
     Active Substance: MINERALS\VITAMINS
  7. PIPERACILLIN/TAZOBACTAM [Concomitant]
     Active Substance: PIPERACILLIN SODIUM\TAZOBACTAM SODIUM
  8. SALBUTAMOL [Concomitant]
     Active Substance: ALBUTEROL
  9. THIAMINE. [Concomitant]
     Active Substance: THIAMINE
  10. ACETAMINOPHEN. [Concomitant]
     Active Substance: ACETAMINOPHEN
  11. AMLODIPINE [Concomitant]
     Active Substance: AMLODIPINE BESYLATE
  12. BUPROPION. [Concomitant]
     Active Substance: BUPROPION
     Route: 065
  13. HALDOL [Concomitant]
     Active Substance: HALOPERIDOL
  14. ENOXAPARIN [Concomitant]
     Active Substance: ENOXAPARIN
  15. PANTOPRAZOLE [Concomitant]
     Active Substance: PANTOPRAZOLE
  16. INSULIN [Concomitant]
     Active Substance: INSULIN NOS
  17. MIDAZOLAM. [Suspect]
     Active Substance: MIDAZOLAM
     Dosage: 5.0 MILLIGRAM/MIL LILITER
     Route: 040
  18. CLOPIDOGREL [Concomitant]
     Active Substance: CLOPIDOGREL BISULFATE
  19. FERROUS SULFATE. [Concomitant]
     Active Substance: FERROUS SULFATE
  20. PROPRANOLOL [Concomitant]
     Active Substance: PROPRANOLOL HYDROCHLORIDE
  21. ATORVASTATIN [Concomitant]
     Active Substance: ATORVASTATIN
  22. LORAZEPAM. [Concomitant]
     Active Substance: LORAZEPAM
  23. PAROXETINE. [Concomitant]
     Active Substance: PAROXETINE

REACTIONS (2)
  - Aspiration [Unknown]
  - Respiratory distress [Unknown]
